FAERS Safety Report 8287239-2 (Version None)
Quarter: 2012Q2

REPORT INFORMATION
  Report Type: 
  Country: None (occurrence: None)
  Receive Date: 20120416
  Receipt Date: 20120405
  Transmission Date: 20120825
  Serious: Yes (Hospitalization)
  Sender: FDA-Public Use
  Company Number: IT-TEVA-332158ISR

PATIENT
  Sex: Male

DRUGS (5)
  1. CISPLATIN [Suspect]
     Indication: OROPHARYNGEAL CANCER STAGE UNSPECIFIED
     Dosage: 171 MILLIGRAM;
     Route: 042
     Dates: start: 20120326, end: 20120326
  2. FLUOROURACIL [Suspect]
     Indication: OROPHARYNGEAL CANCER STAGE UNSPECIFIED
     Dosage: 1710 MILLIGRAM;
     Route: 042
     Dates: start: 20120326, end: 20120330
  3. ONDANSETRON [Concomitant]
     Indication: OROPHARYNGEAL CANCER STAGE UNSPECIFIED
     Dosage: 8 MILLIGRAM;
     Route: 042
     Dates: start: 20120326, end: 20120330
  4. DEXAMETHASONE [Concomitant]
     Indication: OROPHARYNGEAL CANCER STAGE UNSPECIFIED
     Dosage: 8 MILLIGRAM;
     Route: 042
     Dates: start: 20120326, end: 20120327
  5. RANITIDINE(RANIDIL) [Concomitant]
     Indication: OROPHARYNGEAL CANCER STAGE UNSPECIFIED
     Dosage: 50 MILLIGRAM;
     Route: 042
     Dates: start: 20120326, end: 20120327

REACTIONS (4)
  - HEADACHE [None]
  - ERYTHEMA [None]
  - HYPERTENSIVE CRISIS [None]
  - BRADYCARDIA [None]
